FAERS Safety Report 8449621-X (Version None)
Quarter: 2012Q2

REPORT INFORMATION
  Report Type: 
  Country: None (occurrence: None)
  Receive Date: 20120620
  Receipt Date: 20120613
  Transmission Date: 20120825
  Serious: Yes (Hospitalization)
  Sender: FDA-Public Use
  Company Number: 2007BI001931

PATIENT
  Age: 60 Year
  Sex: Male
  Weight: 68 kg

DRUGS (2)
  1. AVONEX [Suspect]
     Indication: MULTIPLE SCLEROSIS
     Route: 030
     Dates: start: 19970101, end: 20030801
  2. AVONEX [Suspect]
     Route: 030
     Dates: start: 20030801

REACTIONS (5)
  - CARDIAC ARREST [None]
  - LOSS OF CONSCIOUSNESS [None]
  - NERVE BLOCK [None]
  - NERVOUSNESS [None]
  - CARDIAC FAILURE [None]
